FAERS Safety Report 8759178 (Version 2)
Quarter: 2013Q4

REPORT INFORMATION
  Report Type: Spontaneous
  Country: US (occurrence: US)
  Receive Date: 20120829
  Receipt Date: 20131101
  Transmission Date: 20140711
  Serious: No
  Sender: FDA-Public Use
  Company Number: US-009507513-1207USA006440

PATIENT
  Sex: Female

DRUGS (5)
  1. DULERA [Suspect]
     Indication: ASTHMA
     Dosage: 2 DF, BID
     Dates: start: 20120709
  2. AMLODIPINE [Concomitant]
     Dosage: 5 MG, QD
  3. PRILOSEC [Concomitant]
     Dosage: 20 MG, QD
  4. PROAIR HFA [Concomitant]
     Dosage: 1-2 PUFFS EVERY 4-6H, PRN
  5. TIMOLOL [Concomitant]
     Dosage: 1 DF, QD
     Route: 031

REACTIONS (3)
  - Oral pain [Recovering/Resolving]
  - Oral mucosal erythema [Recovering/Resolving]
  - Headache [Recovering/Resolving]
